FAERS Safety Report 12131662 (Version 1)
Quarter: 2016Q1

REPORT INFORMATION
  Report Type: Spontaneous
  Country: US (occurrence: US)
  Receive Date: 20160301
  Receipt Date: 20160301
  Transmission Date: 20160526
  Serious: No
  Sender: FDA-Public Use
  Company Number: US-JNJFOC-20160123415

PATIENT
  Sex: Male

DRUGS (1)
  1. REMICADE [Suspect]
     Active Substance: INFLIXIMAB
     Indication: COLITIS ULCERATIVE
     Dosage: RECEIVED 1 DOSE.  AND AT 2-4 WEEKS.
     Route: 042

REACTIONS (3)
  - Injection site reaction [Unknown]
  - Pyrexia [Unknown]
  - Arthralgia [Unknown]
